FAERS Safety Report 9847528 (Version 1)
Quarter: 2014Q1

REPORT INFORMATION
  Report Type: Spontaneous
  Country: US (occurrence: US)
  Receive Date: 20140128
  Receipt Date: 20140128
  Transmission Date: 20141002
  Serious: Yes (Hospitalization, Other)
  Sender: FDA-Public Use
  Company Number: US-AMGEN-USASP2014004902

PATIENT
  Age: 39 Year
  Sex: Male

DRUGS (3)
  1. ENBREL [Suspect]
     Indication: PSORIATIC ARTHROPATHY
     Dosage: 25 MG, 2 TIMES/WK
     Route: 065
  2. METHOTREXATE [Concomitant]
     Dosage: UNK
  3. REMICAIDE [Concomitant]
     Dosage: UNK

REACTIONS (11)
  - Brain neoplasm [Unknown]
  - Road traffic accident [Recovered/Resolved]
  - Cervical vertebral fracture [Recovered/Resolved]
  - Lower limb fracture [Recovered/Resolved]
  - Coma [Recovered/Resolved]
  - Convulsion [Unknown]
  - Pruritus [Not Recovered/Not Resolved]
  - Erythema [Not Recovered/Not Resolved]
  - Psoriatic arthropathy [Unknown]
  - Arthralgia [Not Recovered/Not Resolved]
  - Herpes zoster [Recovered/Resolved]
